FAERS Safety Report 8882400 (Version 1)
Quarter: 2012Q4

REPORT INFORMATION
  Report Type: 
  Country: CN (occurrence: CN)
  Receive Date: 20121102
  Receipt Date: 20121102
  Transmission Date: 20130627
  Serious: Yes (Other)
  Sender: FDA-Public Use
  Company Number: CN-PFIZER INC-2012268216

PATIENT
  Age: 32 Year
  Sex: Male

DRUGS (1)
  1. LIPITOR [Suspect]
     Dosage: 10 mg, in the evening 1x/day
     Dates: start: 20121018

REACTIONS (2)
  - Deafness transitory [Recovered/Resolved]
  - Disturbance in attention [Recovered/Resolved]
